FAERS Safety Report 24557389 (Version 1)
Quarter: 2024Q4

REPORT INFORMATION
  Report Type: Spontaneous
  Country: AU (occurrence: AU)
  Receive Date: 20241028
  Receipt Date: 20241028
  Transmission Date: 20250115
  Serious: Yes (Other)
  Sender: BRAEBURN PHARMACEUTICALS
  Company Number: AU-CAMURUS AB-AU-CAM-24-01311

PATIENT
  Age: 65 Year
  Sex: Male

DRUGS (1)
  1. BUPRENORPHINE [Suspect]
     Active Substance: BUPRENORPHINE
     Indication: Product used for unknown indication
     Dosage: 128 MILLIGRAM, MONTHLY
     Route: 058
     Dates: start: 20201102

REACTIONS (1)
  - Injection site ulcer [Unknown]

NARRATIVE: CASE EVENT DATE: 20240920
